FAERS Safety Report 19668335 (Version 3)
Quarter: 2021Q4

REPORT INFORMATION
  Report Type: Report from Study
  Country: US (occurrence: US)
  Receive Date: 20210806
  Receipt Date: 20211104
  Transmission Date: 20220303
  Serious: Yes (Other)
  Sender: FDA-Public Use
  Company Number: US-BIOVITRUM-2021US1700

PATIENT
  Age: 70 Year
  Sex: Female

DRUGS (1)
  1. KINERET [Suspect]
     Active Substance: ANAKINRA
     Indication: Still^s disease
     Route: 058
     Dates: start: 20190418

REACTIONS (32)
  - Renal impairment [Unknown]
  - Hepatic cirrhosis [Unknown]
  - Systemic lupus erythematosus [Unknown]
  - Coma [Unknown]
  - Still^s disease [Unknown]
  - Neuropathy peripheral [Unknown]
  - Autoimmune disorder [Unknown]
  - Arthropod bite [Unknown]
  - Dermatitis [Unknown]
  - Fibromyalgia [Unknown]
  - Somnolence [Unknown]
  - Arthralgia [Unknown]
  - Condition aggravated [Unknown]
  - Fall [Unknown]
  - Stress [Unknown]
  - Gait disturbance [Unknown]
  - Skin discolouration [Unknown]
  - Depressed mood [Unknown]
  - Crying [Unknown]
  - Lymphoedema [Unknown]
  - Eye irritation [Unknown]
  - Nausea [Unknown]
  - Headache [Unknown]
  - Rash [Unknown]
  - Eye disorder [Unknown]
  - Ageusia [Unknown]
  - Pain [Unknown]
  - Anaemia [Unknown]
  - C-reactive protein increased [Unknown]
  - Condition aggravated [Unknown]
  - Pruritus [Unknown]
  - Off label use [Recovered/Resolved]

NARRATIVE: CASE EVENT DATE: 20190418
